FAERS Safety Report 18333670 (Version 1)
Quarter: 2020Q4

REPORT INFORMATION
  Report Type: Spontaneous
  Country: US (occurrence: US)
  Receive Date: 20201001
  Receipt Date: 20201001
  Transmission Date: 20210113
  Serious: No
  Sender: FDA-Public Use
  Company Number: US-MYLANLABS-2020M1072758

PATIENT
  Age: 58 Year
  Sex: Female
  Weight: 98 kg

DRUGS (5)
  1. WHISPERJECT? AUTOINJECTOR [Suspect]
     Active Substance: DEVICE
     Indication: PRODUCT USED FOR UNKNOWN INDICATION
     Dosage: UNK
  2. ASPIRIN                            /00002701/ [Concomitant]
     Active Substance: ASPIRIN
     Dosage: 81 MILLIGRAM
  3. GLATIRAMER ACETATE INJECTION [Suspect]
     Active Substance: GLATIRAMER ACETATE
     Indication: MULTIPLE SCLEROSIS
     Dosage: 40 MILLIGRAM, 3XW
     Dates: start: 20200813
  4. VITAMIN D                          /00107901/ [Concomitant]
     Active Substance: ERGOCALCIFEROL
     Dosage: UNK
  5. VITAMIIN C [Concomitant]
     Active Substance: ASCORBIC ACID
     Dosage: UNK

REACTIONS (4)
  - Device issue [Unknown]
  - Weight increased [Recovering/Resolving]
  - Product quality issue [Unknown]
  - Fatigue [Recovering/Resolving]

NARRATIVE: CASE EVENT DATE: 20200821
